FAERS Safety Report 7946675-1 (Version None)
Quarter: 2011Q4

REPORT INFORMATION
  Report Type: 
  Country: None (occurrence: None)
  Receive Date: 20111129
  Receipt Date: 20111125
  Transmission Date: 20120403
  Serious: Yes (Death)
  Sender: FDA-Public Use
  Company Number: JP-GENZYME-200910366BYL

PATIENT
  Sex: Male

DRUGS (26)
  1. FLUDARA [Suspect]
     Indication: NON-HODGKIN'S LYMPHOMA UNSPECIFIED HISTOLOGY INDOLENT STAGE IV
     Dosage: 50 MG UNK
     Route: 048
     Dates: start: 20080410, end: 20080411
  2. DOXORUBICIN HCL [Concomitant]
     Indication: NON-HODGKIN'S LYMPHOMA UNSPECIFIED HISTOLOGY INDOLENT STAGE IV
     Dosage: UNK
     Dates: start: 20080421
  3. OMEPRAZOLE [Concomitant]
     Indication: GASTRITIS
     Dosage: 40 MG UNK
     Route: 042
     Dates: start: 20080412, end: 20080420
  4. KAYTWO N [Concomitant]
     Indication: PRODUCT USED FOR UNKNOWN INDICATION
     Dosage: 10 MG UNK
     Route: 042
     Dates: start: 20080414, end: 20080415
  5. NEOPAREN-1 [Concomitant]
     Indication: MALNUTRITION
     Dosage: 1000 ML UNK
     Route: 042
     Dates: start: 20080416, end: 20080417
  6. ETOPOSIDE [Concomitant]
     Indication: NON-HODGKIN'S LYMPHOMA UNSPECIFIED HISTOLOGY INDOLENT STAGE IV
     Dosage: UNK
     Dates: start: 20080421
  7. MAGMITT [Concomitant]
     Indication: CONSTIPATION
     Dosage: 1500 MG UNK
     Route: 048
     Dates: start: 20080327, end: 20080412
  8. PURSENNID [Concomitant]
     Indication: CONSTIPATION
     Dosage: UNK, UNK
     Route: 048
     Dates: start: 20080327, end: 20080412
  9. METHOTREXATE [Concomitant]
     Indication: NON-HODGKIN'S LYMPHOMA UNSPECIFIED HISTOLOGY INDOLENT STAGE IV
     Dosage: UNK
     Dates: start: 20080421
  10. PREDNISOLONE [Concomitant]
     Dosage: UNK
     Dates: start: 20080421
  11. VINCRISTINE SULFATE [Concomitant]
     Indication: NON-HODGKIN'S LYMPHOMA UNSPECIFIED HISTOLOGY INDOLENT STAGE IV
     Dosage: UNK
     Dates: start: 20080421
  12. CYCLOPHOSPHAMIDE [Concomitant]
     Indication: NON-HODGKIN'S LYMPHOMA UNSPECIFIED HISTOLOGY INDOLENT STAGE IV
     Dosage: UNK
     Dates: start: 20080421
  13. DEXAMETHASONE [Concomitant]
     Indication: NON-HODGKIN'S LYMPHOMA UNSPECIFIED HISTOLOGY INDOLENT STAGE IV
     Dosage: UNK
     Dates: start: 20080421
  14. INTRAFAT [Concomitant]
     Indication: MALNUTRITION
     Dosage: 100 ML UNK
     Route: 042
     Dates: start: 20080418, end: 20080418
  15. RABEPRAZOLE SODIUM [Concomitant]
     Indication: GASTROOESOPHAGEAL REFLUX DISEASE
     Dosage: 10 MG UNK
     Route: 048
     Dates: start: 20080326, end: 20080412
  16. AMIGRAND [Concomitant]
     Indication: DEHYDRATION
     Dosage: 500 ML UNK
     Route: 042
     Dates: start: 20080412, end: 20080415
  17. NEOPAREN-2 [Concomitant]
     Indication: MALNUTRITION
     Dosage: 1000 ML UNK
     Route: 042
     Dates: start: 20080418
  18. BARACLUDE [Concomitant]
     Indication: HEPATITIS B
     Dosage: 0.5 MG UNK
     Route: 048
     Dates: start: 20080327, end: 20080429
  19. WARFARIN SODIUM [Concomitant]
     Indication: DEEP VEIN THROMBOSIS
     Dosage: 0.5 MG UNK
     Route: 048
     Dates: start: 20080404, end: 20080412
  20. RAMELTEON [Concomitant]
     Indication: NAUSEA
     Dosage: UNK, UNK
     Route: 048
     Dates: start: 20080411, end: 20080411
  21. POTASSIUM CHLORIDE [Concomitant]
     Indication: DEHYDRATION
     Dosage: 500 ML UNK
     Route: 042
     Dates: start: 20080411, end: 20080413
  22. SOLACET D [Concomitant]
     Indication: DEHYDRATION
     Dosage: 500 ML UNK
     Route: 042
     Dates: start: 20080413, end: 20080415
  23. KN 1A [Concomitant]
     Indication: DEHYDRATION
     Dosage: 500 ML UNK
     Route: 042
     Dates: start: 20080414, end: 20080417
  24. PREDNISOLONE [Concomitant]
     Dosage: 50 MG UNK
     Route: 048
     Dates: start: 20080412, end: 20080420
  25. MELPHALAN HYDROCHLORIDE [Concomitant]
     Indication: NON-HODGKIN'S LYMPHOMA UNSPECIFIED HISTOLOGY INDOLENT STAGE IV
     Dosage: UNK
     Dates: start: 20080421
  26. PREDNISOLONE [Concomitant]
     Indication: NON-HODGKIN'S LYMPHOMA UNSPECIFIED HISTOLOGY INDOLENT STAGE IV
     Dosage: 20-7.5 MG UNK
     Route: 048
     Dates: start: 20050301, end: 20080411

REACTIONS (8)
  - ANAEMIA [None]
  - HAEMATOCRIT DECREASED [None]
  - HYPONATRAEMIA [None]
  - C-REACTIVE PROTEIN INCREASED [None]
  - NON-HODGKIN'S LYMPHOMA [None]
  - PLATELET COUNT DECREASED [None]
  - HEPATIC ENZYME ABNORMAL [None]
  - NAUSEA [None]
